FAERS Safety Report 7769069-0 (Version None)
Quarter: 2011Q3

REPORT INFORMATION
  Report Type: 
  Country: None (occurrence: None)
  Receive Date: 20110922
  Receipt Date: 20100816
  Transmission Date: 20111222
  Serious: Yes (Hospitalization)
  Sender: FDA-Public Use
  Company Number: US-ASTRAZENECA-2007UW01784

PATIENT
  Age: 634 Month
  Sex: Female
  Weight: 97.1 kg

DRUGS (19)
  1. SEROQUEL [Suspect]
     Dosage: 100 MG-600 MG
     Route: 048
     Dates: start: 20030602
  2. KLONOPIN [Concomitant]
     Route: 048
  3. EFFEXOR [Concomitant]
     Dosage: 75-375 MG
     Dates: start: 20020101
  4. SEROQUEL [Suspect]
     Indication: BIPOLAR DISORDER
     Route: 048
     Dates: start: 20020101, end: 20060324
  5. SEROQUEL [Suspect]
     Route: 048
     Dates: start: 20040101, end: 20060324
  6. SEROQUEL [Suspect]
     Route: 048
     Dates: start: 20040101, end: 20060324
  7. PAXIL [Concomitant]
     Route: 048
  8. LIPITOR [Concomitant]
     Indication: BLOOD CHOLESTEROL INCREASED
  9. GEODON [Concomitant]
     Dates: start: 20070101
  10. RISPERDAL [Concomitant]
     Indication: BIPOLAR DISORDER
     Dates: start: 20060301, end: 20060601
  11. SEROQUEL [Suspect]
     Indication: DEPRESSION
     Route: 048
     Dates: start: 20020101, end: 20060324
  12. SYNTHROID [Concomitant]
     Route: 048
  13. SINGULAIR [Concomitant]
     Route: 048
  14. CLONAZEPAM [Concomitant]
     Dates: start: 20050101
  15. SEROQUEL [Suspect]
     Dosage: 100 MG-600 MG
     Route: 048
     Dates: start: 20030602
  16. WELLBUTRIN [Concomitant]
     Dosage: 75-150 MG
     Route: 048
     Dates: start: 20030101
  17. LIPITOR [Concomitant]
     Indication: HYPERLIPIDAEMIA
  18. CLONIDINE HCL [Concomitant]
     Dates: start: 20070101
  19. RISPERDAL [Concomitant]
     Indication: DEPRESSION
     Dates: start: 20060301, end: 20060601

REACTIONS (5)
  - DIABETIC COMA [None]
  - TYPE 2 DIABETES MELLITUS [None]
  - DIABETES MELLITUS [None]
  - OBESITY [None]
  - CHRONIC OBSTRUCTIVE PULMONARY DISEASE [None]
